FAERS Safety Report 23343198 (Version 3)
Quarter: 2024Q1

REPORT INFORMATION
  Report Type: Report from Study
  Country: CN (occurrence: CN)
  Receive Date: 20231227
  Receipt Date: 20240207
  Transmission Date: 20240410
  Serious: No
  Sender: FDA-Public Use
  Company Number: CN-PFIZER INC-PV202300205902

PATIENT
  Age: 36 Year
  Sex: Male
  Weight: 71 kg

DRUGS (31)
  1. NIRMATRELVIR\RITONAVIR [Suspect]
     Active Substance: NIRMATRELVIR\RITONAVIR
     Indication: COVID-19
     Dosage: [NIRMATRELVIR 300 MG]/[RITONAVIR 100 MG], 2X/DAY
     Route: 048
     Dates: start: 20220508, end: 20220513
  2. NIRMATRELVIR\RITONAVIR [Suspect]
     Active Substance: NIRMATRELVIR\RITONAVIR
     Dosage: [NIRMATRELVIR 300 MG]/[RITONAVIR 100 MG], 2X/DAY
     Route: 048
     Dates: start: 20220518, end: 20220523
  3. METOPROLOL TARTRATE [Concomitant]
     Active Substance: METOPROLOL TARTRATE
     Indication: Heart rate decreased
     Dosage: UNK
     Route: 048
     Dates: start: 20220510, end: 20220514
  4. ENOXAPARIN SODIUM [Concomitant]
     Active Substance: ENOXAPARIN SODIUM
     Indication: Anaphylaxis treatment
     Dosage: UNK
     Route: 058
     Dates: start: 20220509, end: 20220509
  5. ENOXAPARIN SODIUM [Concomitant]
     Active Substance: ENOXAPARIN SODIUM
     Indication: Anticoagulant therapy
     Dosage: UNK
     Route: 058
     Dates: start: 20220510, end: 20220531
  6. METOPROLOL SUCCINATE [Concomitant]
     Active Substance: METOPROLOL SUCCINATE
     Indication: Heart rate decreased
     Dosage: SUSTAINED-RELEASE TABLET
     Route: 048
     Dates: start: 20220514, end: 20220531
  7. AMBROXOL HYDROCHLORIDE [Concomitant]
     Active Substance: AMBROXOL HYDROCHLORIDE
     Indication: Cough
     Dosage: UNK
     Route: 048
     Dates: start: 20220515, end: 20220531
  8. COMPOUND LIQUORICE [Concomitant]
     Indication: Cough
     Dosage: UNK
     Route: 048
     Dates: start: 20220515, end: 20220515
  9. COMPOUND LIQUORICE [Concomitant]
     Dosage: UNK
     Route: 048
     Dates: start: 20220515, end: 20220531
  10. THYMALFASIN [Concomitant]
     Active Substance: THYMALFASIN
     Dosage: UNK
     Route: 058
     Dates: start: 20220518, end: 20220518
  11. THYMALFASIN [Concomitant]
     Active Substance: THYMALFASIN
     Dosage: UNK
     Route: 058
     Dates: start: 20220518, end: 20220521
  12. THYMALFASIN [Concomitant]
     Active Substance: THYMALFASIN
     Dosage: UNK
     Route: 058
     Dates: start: 20220522, end: 20220522
  13. FUROSEMIDE [Concomitant]
     Active Substance: FUROSEMIDE
     Indication: Diuretic therapy
     Dosage: UNK
     Route: 048
     Dates: start: 20220509, end: 20220509
  14. FUROSEMIDE [Concomitant]
     Active Substance: FUROSEMIDE
     Dosage: UNK
     Route: 048
     Dates: start: 20220511, end: 20220511
  15. FUROSEMIDE [Concomitant]
     Active Substance: FUROSEMIDE
     Dosage: UNK
     Route: 048
     Dates: start: 20220513, end: 20220514
  16. FUROSEMIDE [Concomitant]
     Active Substance: FUROSEMIDE
     Dosage: UNK
     Route: 048
     Dates: start: 20220520, end: 20220522
  17. FUROSEMIDE [Concomitant]
     Active Substance: FUROSEMIDE
     Dosage: UNK
     Route: 048
     Dates: start: 20220522, end: 20220531
  18. ALBUMIN HUMAN [Concomitant]
     Active Substance: ALBUMIN HUMAN
     Indication: Hypoproteinaemia
     Dosage: UNK
     Route: 042
     Dates: start: 20220507, end: 20220508
  19. ALBUMIN HUMAN [Concomitant]
     Active Substance: ALBUMIN HUMAN
     Dosage: UNK
     Route: 042
     Dates: start: 20220508, end: 20220508
  20. ALBUMIN HUMAN [Concomitant]
     Active Substance: ALBUMIN HUMAN
     Dosage: UNK
     Route: 042
     Dates: start: 20220513, end: 20220513
  21. LIDOCAINE HYDROCHLORIDE [Concomitant]
     Active Substance: LIDOCAINE HYDROCHLORIDE
     Indication: Local anaesthesia
     Dosage: UNK
     Dates: start: 20220507, end: 20220508
  22. DEXAMETHASONE SODIUM PHOSPHATE [Concomitant]
     Active Substance: DEXAMETHASONE PHOSPHATE\DEXAMETHASONE SODIUM PHOSPHATE
     Indication: Anaphylaxis treatment
     Dosage: UNK
     Route: 042
     Dates: start: 20220508, end: 20220508
  23. CALCIUM CHLORIDE\POTASSIUM CHLORIDE\SODIUM CHLORIDE\SODIUM LACTATE [Concomitant]
     Active Substance: CALCIUM CHLORIDE\POTASSIUM CHLORIDE\SODIUM CHLORIDE\SODIUM LACTATE
     Indication: Fluid replacement
     Dosage: UNK
     Route: 042
     Dates: start: 20220508, end: 20220508
  24. CALCIUM GLUCONATE [Concomitant]
     Active Substance: CALCIUM GLUCONATE
     Dosage: UNK
     Route: 042
     Dates: start: 20220508, end: 20220508
  25. POTASSIUM CHLORIDE [Concomitant]
     Active Substance: POTASSIUM CHLORIDE
     Indication: Mineral supplementation
     Dosage: SUSTAINED-RELEASE TABLETS
     Route: 048
     Dates: start: 20220508, end: 20220508
  26. ESMOLOL HYDROCHLORIDE [Concomitant]
     Active Substance: ESMOLOL HYDROCHLORIDE
     Indication: Sinus tachycardia
     Dosage: UNK
     Route: 050
     Dates: start: 20220508, end: 20220508
  27. ESMOLOL HYDROCHLORIDE [Concomitant]
     Active Substance: ESMOLOL HYDROCHLORIDE
     Dosage: UNK
     Route: 050
     Dates: start: 20220509, end: 20220509
  28. ESMOLOL HYDROCHLORIDE [Concomitant]
     Active Substance: ESMOLOL HYDROCHLORIDE
     Dosage: UNK
     Route: 050
     Dates: start: 20220513, end: 20220513
  29. ADENOSINE DISODIUM TRIPHOSPHATE [Concomitant]
     Indication: Cardiac failure
     Dosage: UNK
     Route: 042
     Dates: start: 20220508, end: 20220508
  30. MUCOPOLYSACCHARIDE POLYSULFATE [Concomitant]
     Dosage: UNK
     Route: 061
     Dates: start: 20220509, end: 20220509
  31. MOXIFLOXACIN [Concomitant]
     Active Substance: MOXIFLOXACIN
     Dosage: UNK
     Route: 061
     Dates: start: 20220520, end: 20220520

REACTIONS (1)
  - Overdose [Unknown]
